FAERS Safety Report 17507564 (Version 1)
Quarter: 2020Q1

REPORT INFORMATION
  Report Type: Spontaneous
  Country: FR (occurrence: FR)
  Receive Date: 20200306
  Receipt Date: 20200306
  Transmission Date: 20200409
  Serious: Yes (Hospitalization)
  Sender: FDA-Public Use
  Company Number: FR-ROCHE-2561356

PATIENT
  Age: 16 Year
  Sex: Male
  Weight: 54 kg

DRUGS (5)
  1. METHOTREXATE BIODIM [Suspect]
     Active Substance: METHOTREXATE
     Indication: BURKITT^S LYMPHOMA
     Route: 024
     Dates: start: 20180329, end: 20180329
  2. HYDROCORTISONE SUCCINAT SODIC [Suspect]
     Active Substance: HYDROCORTISONE SODIUM SUCCINATE
     Indication: BURKITT^S LYMPHOMA
     Route: 024
     Dates: start: 20180329, end: 20180329
  3. ETOPOSIDE MYLAN [Suspect]
     Active Substance: ETOPOSIDE
     Indication: BURKITT^S LYMPHOMA
     Route: 042
     Dates: start: 20180330, end: 20180403
  4. MABTHERA [Suspect]
     Active Substance: RITUXIMAB
     Indication: BURKITT^S LYMPHOMA
     Route: 041
     Dates: start: 20180329, end: 20180329
  5. CYTARABINE SANDOZ [Suspect]
     Active Substance: CYTARABINE
     Indication: BURKITT^S LYMPHOMA
     Dosage: 84 MG DE J1 A J5 ET 5000 MG IV DE J2 A J5
     Route: 042
     Dates: start: 20180329, end: 20180403

REACTIONS (1)
  - Febrile bone marrow aplasia [Recovered/Resolved]

NARRATIVE: CASE EVENT DATE: 20180407
